FAERS Safety Report 4709086-8 (Version None)
Quarter: 2005Q3

REPORT INFORMATION
  Report Type: 
  Country: None (occurrence: None)
  Receive Date: 20050705
  Receipt Date: 20050621
  Transmission Date: 20060218
  Serious: Yes (Hospitalization)
  Sender: FDA-Public Use
  Company Number: 232188K05USA

PATIENT
  Age: 43 Year
  Sex: Female

DRUGS (4)
  1. TYLENOL (PARACETAMOL) [Suspect]
  2. REBIF [Suspect]
     Indication: MULTIPLE SCLEROSIS
     Dosage: 44 + 22 MCG, 3 IN 1 WEEKS,
     Dates: start: 20030718
  3. UNSPECIFIED PAIN MEDICATION W/TYLENOL (ALL OTHER THERAPEUTIC PRODUCTS) [Concomitant]
  4. ASPIRIN [Concomitant]

REACTIONS (5)
  - ACCIDENTAL OVERDOSE [None]
  - FEELING ABNORMAL [None]
  - HEPATOTOXICITY [None]
  - LETHARGY [None]
  - VOMITING [None]
